FAERS Safety Report 9603200 (Version 1)
Quarter: 2013Q4

REPORT INFORMATION
  Report Type: Spontaneous
  Country: FR (occurrence: FR)
  Receive Date: 20131007
  Receipt Date: 20131007
  Transmission Date: 20140711
  Serious: Yes (Other)
  Sender: FDA-Public Use
  Company Number: FR-TEVA-435105ISR

PATIENT
  Age: 73 Year
  Sex: Female

DRUGS (2)
  1. AZILECT [Suspect]
  2. MODOPAR 187.5MG [Concomitant]
     Dosage: 562.5 MILLIGRAM DAILY;

REACTIONS (2)
  - Pericarditis [Unknown]
  - Conjunctivitis [Recovered/Resolved]
